FAERS Safety Report 13574724 (Version 38)
Quarter: 2024Q4

REPORT INFORMATION
  Report Type: Report from Study
  Country: GB (occurrence: GB)
  Receive Date: 20170523
  Receipt Date: 20241121
  Transmission Date: 20250115
  Serious: Yes (Hospitalization, Other)
  Sender: MYLAN
  Company Number: GB-SA-2017SA010664

PATIENT
  Age: 55 Year
  Sex: Male

DRUGS (58)
  1. IVABRADINE [Interacting]
     Active Substance: IVABRADINE
     Indication: Angina pectoris
     Dosage: 5 MG, QD,
     Route: 065
     Dates: start: 20150211
  2. IVABRADINE [Interacting]
     Active Substance: IVABRADINE
     Dosage: 10 MG, QD (5 MG BID)
     Route: 065
     Dates: start: 20150211
  3. IVABRADINE [Interacting]
     Active Substance: IVABRADINE
     Dosage: 5 MG, BID
     Route: 065
     Dates: start: 20150211
  4. IVABRADINE [Interacting]
     Active Substance: IVABRADINE
     Dosage: 5 MILLIGRAM, BID
     Route: 065
     Dates: start: 20150211
  5. IVABRADINE [Interacting]
     Active Substance: IVABRADINE
     Dosage: 5 MILLIGRAM
     Route: 065
  6. CARVEDILOL [Interacting]
     Active Substance: CARVEDILOL
     Indication: Angina pectoris
     Dosage: 25 MILLIGRAM, QD
     Route: 065
     Dates: start: 20110616
  7. CARVEDILOL [Interacting]
     Active Substance: CARVEDILOL
     Dosage: 50 MILLIGRAM, QD
     Route: 065
     Dates: start: 20110616
  8. CARVEDILOL [Interacting]
     Active Substance: CARVEDILOL
     Dosage: 50 MILLIGRAM, QD (25 MG, BID)
     Route: 065
     Dates: start: 20110616
  9. CARVEDILOL [Interacting]
     Active Substance: CARVEDILOL
     Dosage: 25 MILLIGRAM, BID
     Route: 065
     Dates: start: 20110616
  10. FUROSEMIDE [Interacting]
     Active Substance: FUROSEMIDE
     Indication: Lung disorder
     Dosage: 40 MG, QD
     Route: 065
     Dates: start: 20160402
  11. FUROSEMIDE [Interacting]
     Active Substance: FUROSEMIDE
     Indication: Pulmonary oedema
     Dosage: 80 MILLIGRAM, QD
     Route: 048
     Dates: start: 20160402
  12. FUROSEMIDE [Interacting]
     Active Substance: FUROSEMIDE
     Indication: Pleural effusion
     Dosage: 40 MG, QD
     Route: 065
     Dates: start: 20160402
  13. FUROSEMIDE [Interacting]
     Active Substance: FUROSEMIDE
     Indication: Left ventricular dysfunction
     Dosage: 40 MG, QD
     Route: 065
     Dates: start: 20160402
  14. FUROSEMIDE [Interacting]
     Active Substance: FUROSEMIDE
     Dosage: 40 MG, QD
     Route: 065
  15. FUROSEMIDE [Interacting]
     Active Substance: FUROSEMIDE
     Dosage: UNK
     Route: 065
  16. OMEPRAZOLE [Interacting]
     Active Substance: OMEPRAZOLE
     Indication: Dyspepsia
     Dosage: UNK
     Route: 048
     Dates: start: 20140116
  17. OMEPRAZOLE [Interacting]
     Active Substance: OMEPRAZOLE
     Indication: Duodenal ulcer
     Dosage: UNK
     Route: 048
     Dates: start: 20140116
  18. RAMIPRIL [Interacting]
     Active Substance: RAMIPRIL
     Indication: Cardiac failure
     Dosage: 1.25 MILLIGRAM, QD
     Route: 048
     Dates: start: 20130813, end: 20160629
  19. RAMIPRIL [Interacting]
     Active Substance: RAMIPRIL
     Dosage: 1 MILLIGRAM, QD
     Route: 048
     Dates: start: 20130813, end: 20160629
  20. QUETIAPINE [Interacting]
     Active Substance: QUETIAPINE
     Indication: Depression
     Dosage: UNK
     Route: 048
     Dates: start: 20150826
  21. ISOSORBIDE MONONITRATE [Interacting]
     Active Substance: ISOSORBIDE MONONITRATE
     Indication: Angina pectoris
     Dosage: 10 MILLIGRAM, QD
     Route: 048
  22. ISOSORBIDE MONONITRATE [Interacting]
     Active Substance: ISOSORBIDE MONONITRATE
     Dosage: 10 MILLIGRAM, QD DURULE
     Route: 048
     Dates: start: 20160205
  23. BOCOCIZUMAB [Suspect]
     Active Substance: BOCOCIZUMAB
     Indication: Cardiovascular disorder
     Dosage: 50 MILLIGRAM, QD (25 MG, BID)
     Route: 058
     Dates: start: 20110616
  24. BOCOCIZUMAB [Suspect]
     Active Substance: BOCOCIZUMAB
     Indication: Angina pectoris
     Dosage: 150 MG BIWEEKLY, EVERY 2 WEEKS
     Route: 058
     Dates: start: 20150908, end: 20161101
  25. BOCOCIZUMAB [Suspect]
     Active Substance: BOCOCIZUMAB
     Dosage: 150 MILLIGRAM, Q2W
     Route: 058
     Dates: start: 20150908, end: 20161101
  26. BOCOCIZUMAB [Suspect]
     Active Substance: BOCOCIZUMAB
     Dosage: 150 MG, EVERY 2 WEEKS
     Route: 058
     Dates: start: 20161101
  27. BOCOCIZUMAB [Suspect]
     Active Substance: BOCOCIZUMAB
     Dosage: UNK
     Route: 058
  28. BOCOCIZUMAB [Suspect]
     Active Substance: BOCOCIZUMAB
     Dosage: UNK
     Route: 065
  29. ASPIRIN [Concomitant]
     Active Substance: ASPIRIN
     Indication: Cardiovascular disorder
     Dosage: UNK
     Route: 065
     Dates: start: 20130708
  30. ATORVASTATIN [Concomitant]
     Active Substance: ATORVASTATIN
     Indication: Cardiovascular disorder
     Dosage: UNK
     Route: 065
     Dates: start: 20130708
  31. NITROGLYCERIN [Concomitant]
     Active Substance: NITROGLYCERIN
     Indication: Pain
     Dosage: UNK
     Route: 065
     Dates: start: 20130902
  32. NITROGLYCERIN [Concomitant]
     Active Substance: NITROGLYCERIN
     Indication: Cardiovascular disorder
     Dosage: UNK
     Route: 065
  33. ACETAMINOPHEN\CODEINE PHOSPHATE [Concomitant]
     Active Substance: ACETAMINOPHEN\CODEINE PHOSPHATE
     Indication: Pain in extremity
     Dosage: UNK
     Route: 065
     Dates: start: 20110616
  34. ACETAMINOPHEN\CODEINE PHOSPHATE [Concomitant]
     Active Substance: ACETAMINOPHEN\CODEINE PHOSPHATE
     Dosage: UNK
     Route: 065
     Dates: start: 20110616
  35. ACETAMINOPHEN\CODEINE PHOSPHATE [Concomitant]
     Active Substance: ACETAMINOPHEN\CODEINE PHOSPHATE
     Dosage: UNK
     Route: 065
     Dates: start: 20110616
  36. ACETAMINOPHEN\CODEINE PHOSPHATE [Concomitant]
     Active Substance: ACETAMINOPHEN\CODEINE PHOSPHATE
     Dosage: UNK
     Route: 065
     Dates: start: 20110616
  37. ACETAMINOPHEN\CODEINE PHOSPHATE [Concomitant]
     Active Substance: ACETAMINOPHEN\CODEINE PHOSPHATE
     Dosage: UNK
     Route: 065
     Dates: start: 20110616
  38. BETAMETHASONE DIPROPIONATE\CLOTRIMAZOLE [Concomitant]
     Active Substance: BETAMETHASONE DIPROPIONATE\CLOTRIMAZOLE
     Indication: Psoriasis
     Dosage: UNK
     Route: 065
     Dates: start: 20150626
  39. METHOTREXATE [Concomitant]
     Active Substance: METHOTREXATE
     Indication: Psoriasis
     Dosage: UNK
     Route: 065
     Dates: start: 20150727
  40. SERTRALINE HYDROCHLORIDE [Concomitant]
     Active Substance: SERTRALINE HYDROCHLORIDE
     Indication: Depression
     Dosage: UNK
     Route: 065
     Dates: start: 20110816
  41. SERTRALINE HYDROCHLORIDE [Concomitant]
     Active Substance: SERTRALINE HYDROCHLORIDE
     Dosage: UNK
     Route: 065
     Dates: start: 20110616
  42. SERTRALINE HYDROCHLORIDE [Concomitant]
     Active Substance: SERTRALINE HYDROCHLORIDE
     Dosage: UNK (49/51)
     Route: 065
     Dates: start: 20160701
  43. ENTRESTO [Concomitant]
     Active Substance: SACUBITRIL\VALSARTAN
     Indication: Ventricular dysfunction
     Dosage: UNK (49/51)
     Route: 065
     Dates: start: 20160601
  44. ENTRESTO [Concomitant]
     Active Substance: SACUBITRIL\VALSARTAN
     Indication: Left ventricular dysfunction
     Dosage: UNK (49/51)
     Route: 065
     Dates: start: 20160701
  45. ENTRESTO [Concomitant]
     Active Substance: SACUBITRIL\VALSARTAN
     Dosage: UNK
     Route: 065
     Dates: start: 20160601
  46. ENTRESTO [Concomitant]
     Active Substance: SACUBITRIL\VALSARTAN
     Dosage: UNK
     Route: 065
  47. FOLIC ACID [Concomitant]
     Active Substance: FOLIC ACID
     Indication: Anaemia
     Dosage: UNK
     Route: 065
     Dates: start: 20131211
  48. ACETAMINOPHEN [Concomitant]
     Active Substance: ACETAMINOPHEN
     Indication: Pain in extremity
     Dosage: UNK
     Route: 065
     Dates: start: 20110616
  49. ACETAMINOPHEN [Concomitant]
     Active Substance: ACETAMINOPHEN
     Dosage: UNK
     Route: 005
     Dates: start: 20160616
  50. ACETAMINOPHEN [Concomitant]
     Active Substance: ACETAMINOPHEN
     Dosage: UNK
     Route: 065
     Dates: start: 20160616
  51. CODEINE PHOSPHATE [Concomitant]
     Active Substance: CODEINE PHOSPHATE
     Indication: Product used for unknown indication
     Dosage: UNK
     Route: 005
  52. SACUBITRIL [Concomitant]
     Active Substance: SACUBITRIL
     Indication: Left ventricular dysfunction
     Dosage: 49/51
     Route: 065
     Dates: start: 20160601
  53. SACUBITRIL [Concomitant]
     Active Substance: SACUBITRIL
     Dosage: UNK
     Route: 065
     Dates: start: 20160701
  54. SACUBITRIL [Concomitant]
     Active Substance: SACUBITRIL
     Dosage: 49/51
     Route: 065
     Dates: start: 20160701
  55. QUETIAPINE [Concomitant]
     Active Substance: QUETIAPINE
     Indication: Depression
     Dosage: UNK, START 16-JAN-2014
     Route: 048
     Dates: start: 20150826
  56. OMEPRAZOLE [Concomitant]
     Active Substance: OMEPRAZOLE
     Indication: Dyspepsia
     Dosage: UNK, START 16-JAN-2014
     Route: 048
     Dates: start: 20140116
  57. IVABRADINE [Concomitant]
     Active Substance: IVABRADINE
     Indication: Angina pectoris
     Dosage: 5 MILLIGRAM, QD
     Route: 065
     Dates: start: 20150211
  58. IVABRADINE [Concomitant]
     Active Substance: IVABRADINE
     Dosage: 10 MILLIGRAM, QD (5 MG BID)
     Route: 065
     Dates: start: 20150211

REACTIONS (13)
  - Pulmonary oedema [Unknown]
  - Contusion [Recovered/Resolved]
  - Angina pectoris [Unknown]
  - Cardiac failure [Unknown]
  - Ventricular dysfunction [Unknown]
  - Psoriasis [Unknown]
  - Fluid retention [Unknown]
  - Anaemia [Unknown]
  - Oedema peripheral [Not Recovered/Not Resolved]
  - Presyncope [Unknown]
  - Hypotension [Recovered/Resolved]
  - Drug interaction [Recovered/Resolved]
  - Off label use [Unknown]

NARRATIVE: CASE EVENT DATE: 20130919
